FAERS Safety Report 17439156 (Version 1)
Quarter: 2020Q1

REPORT INFORMATION
  Report Type: Spontaneous
  Country: DE (occurrence: DE)
  Receive Date: 20200220
  Receipt Date: 20200220
  Transmission Date: 20200409
  Serious: Yes (Other)
  Sender: FDA-Public Use
  Company Number: DE-HORMOSAN PHARMA GMBH-2020-00701

PATIENT
  Sex: Male

DRUGS (3)
  1. PAROXETIN-HORMOSAN [Suspect]
     Active Substance: PAROXETINE HYDROCHLORIDE
     Dosage: UNK
     Route: 065
  2. PAROXETIN-HORMOSAN [Suspect]
     Active Substance: PAROXETINE HYDROCHLORIDE
     Indication: OBSESSIVE-COMPULSIVE DISORDER
     Dosage: UNK, DOSE 30 MG
     Route: 065
  3. PAROXETIN-HORMOSAN [Suspect]
     Active Substance: PAROXETINE HYDROCHLORIDE
     Dosage: UNK, DOSE 60 MG
     Route: 065

REACTIONS (1)
  - Alanine aminotransferase increased [Unknown]
